FAERS Safety Report 11446907 (Version 1)
Quarter: 2015Q3

REPORT INFORMATION
  Report Type: Spontaneous
  Country: US (occurrence: US)
  Receive Date: 20150831
  Receipt Date: 20150831
  Transmission Date: 20151125
  Serious: No
  Sender: FDA-Public Use
  Company Number: US-ELI_LILLY_AND_COMPANY-US200901000422

PATIENT
  Sex: Female

DRUGS (1)
  1. CYMBALTA [Suspect]
     Active Substance: DULOXETINE HYDROCHLORIDE
     Indication: ARTHRALGIA
     Dosage: 120 MG, UNK

REACTIONS (5)
  - Nausea [Unknown]
  - Crying [Unknown]
  - Tremor [Unknown]
  - Drug effect incomplete [Unknown]
  - Pain [Unknown]
